FAERS Safety Report 24238491 (Version 1)
Quarter: 2024Q3

REPORT INFORMATION
  Report Type: Spontaneous
  Country: GB (occurrence: GB)
  Receive Date: 20240822
  Receipt Date: 20240822
  Transmission Date: 20241017
  Serious: Yes (Other)
  Sender: INCYTE
  Company Number: GB-INCYTE CORPORATION-2024IN008753

PATIENT

DRUGS (2)
  1. PEMAZYRE [Suspect]
     Active Substance: PEMIGATINIB
     Indication: Cholangiocarcinoma
     Dosage: UNK
     Route: 065
  2. PEMAZYRE [Suspect]
     Active Substance: PEMIGATINIB
     Dosage: 9 MILLIGRAM, QD
     Route: 065

REACTIONS (3)
  - Metastases to bone [Unknown]
  - Pain [Unknown]
  - Bursitis [Not Recovered/Not Resolved]

NARRATIVE: CASE EVENT DATE: 20240401
